FAERS Safety Report 8199165-8 (Version None)
Quarter: 2012Q1

REPORT INFORMATION
  Report Type: 
  Country: None (occurrence: None)
  Receive Date: 20120309
  Receipt Date: 20120307
  Transmission Date: 20120608
  Serious: No
  Sender: FDA-Public Use
  Company Number: US-PFIZER INC-2012023363

PATIENT
  Sex: Female
  Weight: 54.422 kg

DRUGS (2)
  1. ATORVASTATIN CALCIUM [Suspect]
     Indication: BLOOD CHOLESTEROL INCREASED
     Dosage: 20 MG, DAILY
     Dates: start: 20120118
  2. LEVOTHYROXINE [Concomitant]
     Indication: FLUID RETENTION
     Dosage: UNK, DAILY

REACTIONS (4)
  - CHILLS [None]
  - MUSCLE SPASMS [None]
  - MYALGIA [None]
  - DYSURIA [None]
